FAERS Safety Report 25173628 (Version 2)
Quarter: 2025Q2

REPORT INFORMATION
  Report Type: Spontaneous
  Country: SI (occurrence: SI)
  Receive Date: 20250408
  Receipt Date: 20250425
  Transmission Date: 20250716
  Serious: Yes (Life-Threatening, Hospitalization)
  Sender: ROCHE
  Company Number: SI-ROCHE-10000249027

PATIENT
  Age: 59 Year
  Sex: Female
  Weight: 69 kg

DRUGS (11)
  1. TOCILIZUMAB [Suspect]
     Active Substance: TOCILIZUMAB
     Indication: Autoinflammatory disease
     Dosage: STRENGHT: 20 MG/ML DOSE: 500 MG (8 MG/KG)
     Route: 042
     Dates: start: 20220713, end: 202410
  2. TOCILIZUMAB [Suspect]
     Active Substance: TOCILIZUMAB
     Route: 042
     Dates: start: 20250217, end: 20250217
  3. Nolpaza 40 MG [Concomitant]
     Indication: Product used for unknown indication
     Route: 065
  4. MEDROL [Concomitant]
     Active Substance: METHYLPREDNISOLONE
     Indication: Product used for unknown indication
     Dosage: 12 MG DAILY
     Route: 065
  5. Prenewel 4 MG/1,25 MG [Concomitant]
     Indication: Product used for unknown indication
     Route: 065
  6. ATORVASTATIN [Concomitant]
     Active Substance: ATORVASTATIN
     Indication: Product used for unknown indication
     Route: 065
  7. VITAMIN D3 [Concomitant]
     Active Substance: CHOLECALCIFEROL
     Indication: Product used for unknown indication
     Route: 065
  8. METHOTREXATE (METHOTREXATE SODIUM) [Concomitant]
     Active Substance: METHOTREXATE SODIUM
     Indication: Product used for unknown indication
     Dosage: 15 MG WEEKLY
     Route: 065
  9. Folacin 5 MG [Concomitant]
     Indication: Product used for unknown indication
     Route: 065
  10. Terrosa 20 MICROGRAMS/80 MICROLITERS [Concomitant]
     Dosage: STRENGTH: 20 MICROGRAMS/80 MICROLITERS DOSE: 1 INJECTION DAILY
     Route: 065
  11. FLUCLOXACILLIN [Concomitant]
     Active Substance: FLUCLOXACILLIN
     Indication: Product used for unknown indication
     Dosage: 500 MG EVERY 6 HOURS
     Route: 065

REACTIONS (4)
  - Acute interstitial pneumonitis [Unknown]
  - Haemodynamic instability [Unknown]
  - Acute kidney injury [Unknown]
  - Multiple organ dysfunction syndrome [Recovering/Resolving]

NARRATIVE: CASE EVENT DATE: 20250218
